FAERS Safety Report 7502635-6 (Version None)
Quarter: 2011Q2

REPORT INFORMATION
  Report Type: 
  Country: None (occurrence: None)
  Receive Date: 20110525
  Receipt Date: 20110510
  Transmission Date: 20111010
  Serious: Yes (Hospitalization, Other)
  Sender: FDA-Public Use
  Company Number: PHHY2011FR26319

PATIENT
  Sex: Female

DRUGS (5)
  1. MYSOLINE [Concomitant]
  2. RASILEZ [Suspect]
     Indication: HYPERTENSION
     Dosage: 150 MG, QD
     Route: 048
     Dates: start: 20110201, end: 20110311
  3. TEGRETOL [Concomitant]
  4. LYRICA [Concomitant]
  5. URBANYL [Concomitant]

REACTIONS (4)
  - CYTOLYTIC HEPATITIS [None]
  - TRANSFERRIN INCREASED [None]
  - BLOOD IRON INCREASED [None]
  - SERUM FERRITIN INCREASED [None]
